FAERS Safety Report 6172565-3 (Version None)
Quarter: 2009Q2

REPORT INFORMATION
  Report Type: 
  Country: None (occurrence: None)
  Receive Date: 20090428
  Receipt Date: 20090416
  Transmission Date: 20091009
  Serious: Yes (Life-Threatening, Hospitalization)
  Sender: FDA-Public Use
  Company Number: 2009-195207-NL

PATIENT
  Age: 49 Year
  Sex: Male
  Weight: 117.9 kg

DRUGS (5)
  1. ZEMURON [Suspect]
     Dosage: 3 ML INTRAVENOUS (NOS)
     Route: 042
     Dates: start: 20090415, end: 20090415
  2. LIDOCAINE [Concomitant]
  3. PROPOFOL [Concomitant]
  4. FENTANYL [Concomitant]
  5. ANTIHYPERTENSIVES [Concomitant]

REACTIONS (5)
  - ANAPHYLACTIC REACTION [None]
  - GASTRIC DISORDER [None]
  - ILEUS [None]
  - INTESTINAL ISCHAEMIA [None]
  - NO THERAPEUTIC RESPONSE [None]
